FAERS Safety Report 10029327 (Version 1)
Quarter: 2014Q1

REPORT INFORMATION
  Report Type: Spontaneous
  Country: US (occurrence: US)
  Receive Date: 20140321
  Receipt Date: 20140321
  Transmission Date: 20141002
  Serious: Yes (Other)
  Sender: FDA-Public Use
  Company Number: PHHY2014US032032

PATIENT
  Age: 61 Year
  Sex: Female

DRUGS (5)
  1. ZOLEDRONATE [Suspect]
     Indication: BREAST CANCER
     Route: 042
  2. ZOLEDRONATE [Suspect]
     Indication: METASTASES TO BONE
  3. ZOLEDRONATE [Suspect]
     Indication: METASTASES TO LIVER
  4. CHEMOTHERAPEUTICS [Concomitant]
     Indication: BREAST CANCER
  5. CHEMOTHERAPEUTICS [Concomitant]
     Indication: METASTASES TO BONE

REACTIONS (4)
  - Osteonecrosis of jaw [Unknown]
  - Pain in jaw [Unknown]
  - Swelling [Not Recovered/Not Resolved]
  - Oral disorder [Unknown]
